FAERS Safety Report 5515980-0 (Version None)
Quarter: 2007Q4

REPORT INFORMATION
  Report Type: 
  Country: None (occurrence: None)
  Receive Date: 20071114
  Receipt Date: 20061106
  Transmission Date: 20080405
  Serious: No
  Sender: FDA-Public Use
  Company Number: A0626102A

PATIENT
  Age: 53 Year
  Sex: Female

DRUGS (3)
  1. COMMIT [Suspect]
     Indication: DRUG WITHDRAWAL MAINTENANCE THERAPY
  2. NICORETTE [Suspect]
  3. NICORETTE [Suspect]

REACTIONS (1)
  - INTENTIONAL DRUG MISUSE [None]
